FAERS Safety Report 8248220-2 (Version None)
Quarter: 2012Q1

REPORT INFORMATION
  Report Type: 
  Country: None (occurrence: None)
  Receive Date: 20120330
  Receipt Date: 20120228
  Transmission Date: 20120608
  Serious: Yes (Hospitalization)
  Sender: FDA-Public Use
  Company Number: FR-FRI-1000029461

PATIENT
  Sex: Female

DRUGS (5)
  1. PANTOPRAZOLE [Suspect]
     Dosage: 1 DF
     Route: 048
     Dates: start: 20111222
  2. MEMANTINE [Suspect]
     Dosage: 20 MG
     Route: 048
     Dates: start: 20090101
  3. EUPHYTOSE [Suspect]
     Dosage: 1 DF
     Dates: start: 20111222, end: 20120103
  4. PERINDOPRIL ERBUMINE [Suspect]
     Dosage: 1 DF
     Route: 048
     Dates: start: 20080101
  5. CORVASAL [Suspect]
     Dosage: 4 DF
     Route: 048
     Dates: start: 20080101

REACTIONS (1)
  - PEMPHIGOID [None]
